FAERS Safety Report 5043798-4 (Version None)
Quarter: 2006Q2

REPORT INFORMATION
  Report Type: 
  Country: None (occurrence: None)
  Receive Date: 20060629
  Receipt Date: 20060614
  Transmission Date: 20061013
  Serious: Yes (Hospitalization)
  Sender: FDA-Public Use
  Company Number: 2005EU002413

PATIENT
  Age: 56 Year
  Sex: Female

DRUGS (8)
  1. FK506             (TACROLIMUS) [Suspect]
     Indication: LIVER TRANSPLANT
     Dosage: 3.00 MG, UID/QD, ORAL
     Route: 048
     Dates: start: 20041229, end: 20050126
  2. MYCOPHENOLATE MOFETIL [Suspect]
     Indication: LIVER TRANSPLANT
     Dosage: 1000.00 MG, BID, IV NOS
     Route: 042
     Dates: start: 20041228, end: 20041231
  3. MYCOPHENOLATE MOFETIL [Suspect]
     Indication: LIVER TRANSPLANT
     Dosage: 1000.00 MG, BID, IV NOS
     Route: 042
     Dates: start: 20050101
  4. METHYLPREDNISOLONE [Suspect]
     Indication: LIVER TRANSPLANT
     Dosage: 250.00 MG, UID/QD, UNKNOWN
     Dates: start: 20041229
  5. PREDNISONE TAB [Suspect]
     Indication: LIVER TRANSPLANT
     Dosage: 20.00 MG, UID/QD, UNKNOWN
     Dates: start: 20050101, end: 20050119
  6. TAZOCILLINE              (PIPERACILLIN SODIUM,TAZOBACTAM SODIUM) [Concomitant]
  7. PARACETAMOL [Concomitant]
  8. INSULIN [Concomitant]

REACTIONS (3)
  - ASCITES [None]
  - DRUG TOXICITY [None]
  - HEPATORENAL SYNDROME [None]
